FAERS Safety Report 14201600 (Version 1)
Quarter: 2017Q4

REPORT INFORMATION
  Report Type: Spontaneous
  Country: US (occurrence: US)
  Receive Date: 20171117
  Receipt Date: 20171117
  Transmission Date: 20180321
  Serious: No
  Sender: FDA-Public Use
  Company Number: US-PERRIGO-17US026705

PATIENT
  Sex: Male
  Weight: 81.63 kg

DRUGS (16)
  1. AMLODIPINE                         /00972402/ [Concomitant]
     Active Substance: AMLODIPINE BESYLATE
     Indication: HYPERTENSION
     Dosage: 5 MG, UNKNOWN
     Route: 048
  2. ASPIRIN                            /00002701/ [Concomitant]
     Active Substance: ASPIRIN
     Indication: HYPERTENSION
     Dosage: 81 MG, UNKNOWN
     Route: 048
  3. POLYETHYLENE GLYCOL 3350. [Suspect]
     Active Substance: POLYETHYLENE GLYCOL 3350
     Indication: CONSTIPATION
     Dosage: 17 G, QD
     Route: 048
     Dates: start: 2016
  4. CARVEDILOL. [Concomitant]
     Active Substance: CARVEDILOL
     Indication: HYPERTENSION
     Dosage: 12.5 MG, UNKNOWN
     Route: 048
  5. FLUTICASONE. [Concomitant]
     Active Substance: FLUTICASONE
     Indication: NASAL SEPTUM DEVIATION
     Dosage: UNKNOWN, UNKNOWN
     Route: 048
  6. FLUTICASONE. [Concomitant]
     Active Substance: FLUTICASONE
     Indication: SINUS DISORDER
  7. PROTONIX                           /00661201/ [Concomitant]
     Active Substance: OMEPRAZOLE
     Indication: GASTROOESOPHAGEAL REFLUX DISEASE
     Dosage: UNKNOWN, UNKNOWN
     Route: 048
  8. OXYCODONE                          /00045603/ [Concomitant]
     Active Substance: OXYCODONE
     Indication: PAIN
     Dosage: 10/325 MG, UNKNOWN
     Route: 048
  9. HYDROCHLOROTHIAZIDE. [Concomitant]
     Active Substance: HYDROCHLOROTHIAZIDE
     Indication: HYPERTENSION
     Dosage: 25 MG, UNKNOWN
     Route: 048
  10. LOSARTAN                           /01121602/ [Concomitant]
     Active Substance: LOSARTAN
     Indication: HYPERTENSION
     Dosage: 100 MG, UNKNOWN
     Route: 048
  11. ADVAIR UNSPEC [Concomitant]
     Indication: EMPHYSEMA
     Dosage: 250/50, UNKNOWN
     Route: 048
  12. ATORVASTATIN [Concomitant]
     Active Substance: ATORVASTATIN
     Indication: ROUTINE HEALTH MAINTENANCE
     Dosage: 10 MG, UNKNOWN
     Route: 048
  13. CLARITIN [Concomitant]
     Active Substance: LORATADINE
     Indication: NASAL SEPTUM DEVIATION
     Dosage: 10 MG, UNKNOWN
     Route: 048
  14. CLARITIN [Concomitant]
     Active Substance: LORATADINE
     Indication: SINUS DISORDER
  15. COMBIVENT RESPIMAT [Concomitant]
     Active Substance: ALBUTEROL SULFATE\IPRATROPIUM BROMIDE
     Indication: EMPHYSEMA
     Dosage: UNKNOWN, UNKNOWN
     Route: 048
  16. IPRATROPIUM W/SALBUTAMOL [Concomitant]
     Indication: EMPHYSEMA
     Dosage: UNKNOWN, UNKNOWN
     Route: 048

REACTIONS (2)
  - Dry skin [Unknown]
  - Incorrect drug administration duration [Not Recovered/Not Resolved]

NARRATIVE: CASE EVENT DATE: 2016
